FAERS Safety Report 20452256 (Version 3)
Quarter: 2023Q2

REPORT INFORMATION
  Report Type: Report from Study
  Country: CO (occurrence: CO)
  Receive Date: 20220210
  Receipt Date: 20230626
  Transmission Date: 20230721
  Serious: Yes (Hospitalization, Other)
  Sender: FDA-Public Use
  Company Number: CO-ABBVIE-22K-036-4271056-00

PATIENT
  Sex: Male
  Weight: 63 kg

DRUGS (2)
  1. HUMIRA [Suspect]
     Active Substance: ADALIMUMAB
     Indication: Crohn^s disease
     Dosage: FORM STRENGTH: 40MG
     Route: 058
     Dates: end: 20220429
  2. HUMIRA [Suspect]
     Active Substance: ADALIMUMAB

REACTIONS (13)
  - Prostate cancer [Not Recovered/Not Resolved]
  - Prostatomegaly [Recovered/Resolved]
  - Asphyxia [Recovered/Resolved]
  - Colitis [Recovered/Resolved]
  - Bacterial infection [Recovered/Resolved]
  - Pollakiuria [Recovering/Resolving]
  - Chest discomfort [Recovered/Resolved]
  - Renal disorder [Recovered/Resolved]
  - Blood creatinine abnormal [Recovering/Resolving]
  - Bladder disorder [Recovered/Resolved]
  - Procedural pain [Recovered/Resolved]
  - Urethral obstruction [Recovering/Resolving]
  - Discomfort [Recovering/Resolving]

NARRATIVE: CASE EVENT DATE: 20200101
